FAERS Safety Report 15851193 (Version 2)
Quarter: 2019Q1

REPORT INFORMATION
  Report Type: Spontaneous
  Country: CZ (occurrence: CZ)
  Receive Date: 20190122
  Receipt Date: 20190207
  Transmission Date: 20190417
  Serious: Yes (Hospitalization, Other)
  Sender: FDA-Public Use
  Company Number: CZ-AUROBINDO-AUR-APL-2019-002029

PATIENT

DRUGS (1)
  1. GLIMEPIRIDE TABLET [Suspect]
     Active Substance: GLIMEPIRIDE
     Indication: DIABETES MELLITUS
     Dosage: 2 MILLIGRAM, ONCE A DAY
     Route: 065

REACTIONS (5)
  - Pancreatic disorder [Unknown]
  - Diabetic metabolic decompensation [Recovered/Resolved]
  - Therapy partial responder [Not Recovered/Not Resolved]
  - Pancreatitis [Unknown]
  - Pancreatitis chronic [Unknown]

NARRATIVE: CASE EVENT DATE: 201403
